FAERS Safety Report 4916452-4 (Version None)
Quarter: 2006Q1

REPORT INFORMATION
  Report Type: 
  Country: None (occurrence: None)
  Receive Date: 20060214
  Receipt Date: 20060203
  Transmission Date: 20060701
  Serious: Yes (Other)
  Sender: FDA-Public Use
  Company Number: 200610538GDS

PATIENT
  Age: 65 Year
  Sex: Female

DRUGS (3)
  1. CIPRO [Suspect]
     Dosage: ORAL
     Route: 048
  2. THEO-DUR [Suspect]
     Dosage: 300 MG, BID, ORAL
     Route: 048
  3. THEO-DUR [Concomitant]

REACTIONS (11)
  - ABDOMINAL PAIN [None]
  - CHEST PAIN [None]
  - CONFUSIONAL STATE [None]
  - COORDINATION ABNORMAL [None]
  - DELIRIUM [None]
  - DRUG INTERACTION [None]
  - ELECTROCARDIOGRAM CHANGE [None]
  - HEADACHE [None]
  - HYPOKALAEMIA [None]
  - HYPOVOLAEMIA [None]
  - NAUSEA [None]
